FAERS Safety Report 20176077 (Version 1)
Quarter: 2021Q4

REPORT INFORMATION
  Report Type: Spontaneous
  Country: GB (occurrence: GB)
  Receive Date: 20211213
  Receipt Date: 20211213
  Transmission Date: 20220303
  Serious: Yes (Other)
  Sender: FDA-Public Use
  Company Number: GB-002147023-NVSC2021GB241424

PATIENT
  Age: 33 Year
  Sex: Female

DRUGS (5)
  1. FINGOLIMOD [Suspect]
     Active Substance: FINGOLIMOD
     Indication: Multiple sclerosis
     Dosage: UNK
     Route: 065
     Dates: start: 20210605
  2. FINGOLIMOD [Suspect]
     Active Substance: FINGOLIMOD
     Dosage: .5 MILLIGRAM DAILY;
     Route: 048
     Dates: start: 20210607, end: 20211020
  3. CETIRIZINE HYDROCHLORIDE [Concomitant]
     Active Substance: CETIRIZINE HYDROCHLORIDE
     Indication: Eczema
     Dosage: UNK
     Route: 065
  4. DIAZEPAM [Concomitant]
     Active Substance: DIAZEPAM
     Indication: Anxiety
     Dosage: 2MG PRN
     Route: 048
  5. SERTRALINE [Concomitant]
     Active Substance: SERTRALINE HYDROCHLORIDE
     Indication: Affective disorder
     Dosage: 200 MILLIGRAM DAILY;
     Route: 048

REACTIONS (2)
  - Macular oedema [Unknown]
  - Uveitis [Unknown]

NARRATIVE: CASE EVENT DATE: 20211007
